FAERS Safety Report 10361949 (Version 1)
Quarter: 2014Q1

REPORT INFORMATION
  Report Type: Spontaneous
  Country: US (occurrence: None)
  Receive Date: 20140306
  Receipt Date: 20140306
  Transmission Date: 20141002
  Serious: Yes (Hospitalization)
  Sender: FDA-Public Use
  Company Number: 163-21880-13074915

PATIENT
  Age: 79 Year
  Sex: Male

DRUGS (9)
  1. REVLIMID [Suspect]
     Indication: PLASMA CELL MYELOMA
     Route: 048
     Dates: start: 20120427
  2. ALPRAZOLAM (ALPRAZOLAM) (UNKNOWN) (ALPRAZOLAM) [Concomitant]
  3. ASPIRIN (ACETYLSALICYLIC ACID) (UNKNOWN) (ACETYLSALICYLIC ACID) [Concomitant]
  4. CLONIDINE HCL (CLONIDINE HYDROCHLORIDE) (UNKNOWN) [Concomitant]
  5. DEXAMETHASONE (DEXAMETHASONE) (UNKNOWN) [Concomitant]
  6. EDARBYCLOR (EDARBYCLOR) (UNKNOWN) [Concomitant]
  7. EXFORGE (AMLODIPINE W/ VALSARTAN) (UNKNOWN) [Concomitant]
  8. FLOMAX (TAMSULOSIN) (UNKNOWN) [Concomitant]
  9. FOLIC ACID (FOLIC ACID) (UNKNOWN) [Concomitant]

REACTIONS (1)
  - Full blood count decreased [None]
